FAERS Safety Report 17985238 (Version 1)
Quarter: 2020Q3

REPORT INFORMATION
  Report Type: Spontaneous
  Country: US (occurrence: US)
  Receive Date: 20200706
  Receipt Date: 20200706
  Transmission Date: 20201103
  Serious: Yes (Other)
  Sender: FDA-Public Use
  Company Number: US-MYLANLABS-2020M1060989

PATIENT
  Age: 34 Year
  Sex: Female

DRUGS (11)
  1. PREDNISONE. [Suspect]
     Active Substance: PREDNISONE
     Dosage: 90 MILLIGRAM, QD, RECEIVED DURING PREGNANCY AND BREASTFEEDING
     Route: 048
  2. METHYLPREDNISOLONE. [Suspect]
     Active Substance: METHYLPREDNISOLONE
     Indication: IMMUNE THROMBOCYTOPENIA
     Dosage: 500 MILLIGRAM, QD RECEIVED POSTPARTUM
     Route: 042
  3. NPLATE [Suspect]
     Active Substance: ROMIPLOSTIM
     Dosage: 2 MICROGRAM/KILOGRAM, QD, RECEIVED THE SECOND DOSE ROMIPLOSTIM ON THE THIRD POSTPARTUM DAY
     Route: 065
  4. LABETALOL [Suspect]
     Active Substance: LABETALOL\LABETALOL HYDROCHLORIDE
     Indication: HYPERTENSION
     Dosage: 200 MILLIGRAM, BID
     Route: 048
  5. TRANEXAMIC ACID. [Concomitant]
     Active Substance: TRANEXAMIC ACID
     Indication: POSTPARTUM HAEMORRHAGE
     Dosage: 1000 MILLIGRAM
     Route: 042
  6. BETAMETHASONE. [Suspect]
     Active Substance: BETAMETHASONE
     Indication: MATERNAL THERAPY TO ENHANCE FOETAL LUNG MATURITY
     Dosage: 12 MILLIGRAM, QD, RECEIVED 2 DOSES 24?HOUR APART DURING PREGNANCY
     Route: 030
  7. IMMUNOGLOBULIN                     /00025201/ [Suspect]
     Active Substance: HUMAN IMMUNOGLOBULIN G
     Dosage: 1 G/KG/DAY; RECEIVED POSTPARTUM
     Route: 042
  8. IMMUNOGLOBULIN                     /00025201/ [Suspect]
     Active Substance: HUMAN IMMUNOGLOBULIN G
     Indication: IMMUNE THROMBOCYTOPENIA
     Dosage: 0.4 G/KG/DAY FOR 5 DOSES; RECEIVED DURING PREGNANCY
     Route: 042
  9. NPLATE [Suspect]
     Active Substance: ROMIPLOSTIM
     Indication: IMMUNE THROMBOCYTOPENIA
     Dosage: 2 UG/KG, QD, EVENING; STARTED AT APPROX 68H POSTDELIVERY (POSTPARTUM DAY 2) DURING BREASTFEEDING
     Route: 065
  10. PREDNISONE. [Suspect]
     Active Substance: PREDNISONE
     Indication: IMMUNE THROMBOCYTOPENIA
     Dosage: 40 MILLIGRAM, QD, RECEIVED DURING PREGNANCY
     Route: 048
  11. HEMABATE [Concomitant]
     Active Substance: CARBOPROST TROMETHAMINE
     Indication: POSTPARTUM HAEMORRHAGE
     Dosage: 250 MICROGRAM
     Route: 030

REACTIONS (2)
  - Maternal exposure during pregnancy [Recovered/Resolved]
  - Treatment failure [Unknown]
